FAERS Safety Report 23122533 (Version 1)
Quarter: 2023Q4

REPORT INFORMATION
  Report Type: Spontaneous
  Country: DK (occurrence: DK)
  Receive Date: 20231030
  Receipt Date: 20231030
  Transmission Date: 20240110
  Serious: Yes (Death)
  Sender: FDA-Public Use
  Company Number: DK-DKMA-WBS-1003009

PATIENT
  Age: 64 Year
  Sex: Female
  Weight: 44 kg

DRUGS (6)
  1. PREGABALIN [Suspect]
     Active Substance: PREGABALIN
     Indication: Pain
     Dosage: 600 MG, QD
     Route: 048
     Dates: start: 20171107
  2. ZOLPIDEM TARTRATE [Suspect]
     Active Substance: ZOLPIDEM TARTRATE
     Indication: Insomnia
     Dosage: 10 MG, QD
     Route: 048
     Dates: start: 20200331
  3. TRAMADOL HYDROCHLORIDE [Suspect]
     Active Substance: TRAMADOL HYDROCHLORIDE
     Indication: Pain
     Dosage: 50 MG, QD
     Route: 048
     Dates: start: 20161209
  4. ATORVASTATIN [Concomitant]
     Active Substance: ATORVASTATIN
     Indication: Hypercholesterolaemia
     Dosage: UNK
     Dates: start: 20161101
  5. ALBUTEROL [Concomitant]
     Active Substance: ALBUTEROL
     Indication: Bronchospasm
     Dosage: UNK
     Dates: start: 20170720
  6. ACETAMINOPHEN [Concomitant]
     Active Substance: ACETAMINOPHEN
     Indication: Pain
     Dosage: UNK
     Dates: start: 20161021

REACTIONS (1)
  - Toxicity to various agents [Fatal]

NARRATIVE: CASE EVENT DATE: 20220901
